FAERS Safety Report 7815878-9 (Version None)
Quarter: 2011Q4

REPORT INFORMATION
  Report Type: 
  Country: None (occurrence: None)
  Receive Date: 20111014
  Receipt Date: 20110929
  Transmission Date: 20120403
  Serious: Yes (Hospitalization)
  Sender: FDA-Public Use
  Company Number: JP-ROCHE-798262

PATIENT
  Sex: Male
  Weight: 71 kg

DRUGS (11)
  1. AVASTIN [Suspect]
     Indication: LUNG ADENOCARCINOMA METASTATIC
     Route: 041
     Dates: start: 20110801, end: 20110801
  2. MORPHINE HCL ELIXIR [Concomitant]
     Dosage: DRUG: MORPHINE HYDROCHLORIDE HYDRATE(MORPHINE HYDROCHLORIDE HYDRATE); DOSAGE IS UNCERTAIN
     Route: 065
  3. ALIMTA [Suspect]
     Indication: LUNG ADENOCARCINOMA METASTATIC
     Dosage: DRUG:ALIMTA(PEMETREXED SODIUM HYDRATE); DOSAGE IS UNCERTAIN
     Route: 041
     Dates: start: 20110801, end: 20110801
  4. DECADRON PHOSPHATE [Concomitant]
     Route: 065
     Dates: start: 20110801, end: 20110801
  5. CEPHADOL [Concomitant]
     Indication: PROPHYLAXIS
     Route: 048
  6. ALOXI [Concomitant]
     Route: 042
     Dates: start: 20110801, end: 20110801
  7. AVAPRO [Concomitant]
     Indication: HYPERTENSION
     Route: 048
  8. CARBOPLATIN [Suspect]
     Indication: LUNG ADENOCARCINOMA METASTATIC
     Dosage: DOSAGE IS UNCERTAIN
     Route: 041
     Dates: start: 20110801, end: 20110801
  9. FENTANYL CITRATE [Concomitant]
     Indication: CANCER PAIN
     Route: 003
  10. OMEPRAZOLE [Concomitant]
     Indication: PROPHYLAXIS
     Route: 048
     Dates: start: 20110727
  11. TIZANIDINE HCL [Concomitant]
     Indication: PROPHYLAXIS
     Route: 048

REACTIONS (3)
  - CHOLECYSTITIS ACUTE [None]
  - VENOUS THROMBOSIS LIMB [None]
  - SEPTIC SHOCK [None]
